FAERS Safety Report 8445994-2 (Version None)
Quarter: 2012Q2

REPORT INFORMATION
  Report Type: 
  Country: None (occurrence: None)
  Receive Date: 20120618
  Receipt Date: 20120615
  Transmission Date: 20120825
  Serious: No
  Sender: FDA-Public Use
  Company Number: US-PFIZER INC-2012145243

PATIENT
  Sex: Male
  Weight: 104 kg

DRUGS (4)
  1. LIPITOR [Suspect]
     Indication: BLOOD CHOLESTEROL INCREASED
     Dosage: 40 MG, DAILY
     Route: 048
     Dates: start: 20070801
  2. NORVASC [Concomitant]
     Indication: HYPERTENSION
     Dosage: 10 MG, DAILY
     Dates: start: 20070101
  3. PERCOCET [Concomitant]
     Indication: BACK PAIN
     Dosage: 5 MG, EVERY SIX HOURS
  4. ATACAND HCT [Concomitant]
     Indication: HYPERTENSION
     Dosage: 32 MG/12.5 MG, DAILY

REACTIONS (1)
  - MYALGIA [None]
